FAERS Safety Report 14293486 (Version 3)
Quarter: 2019Q1

REPORT INFORMATION
  Report Type: Spontaneous
  Country: CA (occurrence: CA)
  Receive Date: 20171215
  Receipt Date: 20190303
  Transmission Date: 20190417
  Serious: Yes (Hospitalization, Other)
  Sender: FDA-Public Use
  Company Number: CA-009507513-1412CAN011428

PATIENT
  Sex: Female

DRUGS (2)
  1. WARFARIN [Concomitant]
     Active Substance: WARFARIN
  2. EZETROL [Suspect]
     Active Substance: EZETIMIBE
     Indication: TYPE IIA HYPERLIPIDAEMIA
     Dosage: DOSE: 10 MILLIGRAM, DAILY (QD)
     Route: 048
     Dates: start: 2008

REACTIONS (6)
  - Pulmonary embolism [Recovering/Resolving]
  - Fall [Recovering/Resolving]
  - Lung infection [Unknown]
  - Appendicitis [Recovering/Resolving]
  - Malaise [Unknown]
  - Fatigue [Recovering/Resolving]

NARRATIVE: CASE EVENT DATE: 2017
